FAERS Safety Report 6214597-2 (Version None)
Quarter: 2009Q2

REPORT INFORMATION
  Report Type: 
  Country: None (occurrence: None)
  Receive Date: 20090604
  Receipt Date: 20081125
  Transmission Date: 20091009
  Serious: Yes (Other)
  Sender: FDA-Public Use
  Company Number: US-PFIZER INC-2008001975

PATIENT
  Age: 48 Year

DRUGS (4)
  1. VARENICLINE TARTRATE [Interacting]
     Dosage: UNK
     Route: 048
     Dates: start: 20070514
  2. FENTANYL [Interacting]
     Dosage: UNK
     Route: 042
     Dates: start: 20070530
  3. PROPOFOL [Suspect]
     Indication: INDUCTION OF ANAESTHESIA
     Dosage: UNK
     Route: 042
     Dates: start: 20070530
  4. CANNABIS [Concomitant]

REACTIONS (3)
  - DRUG INEFFECTIVE [None]
  - DRUG INTERACTION [None]
  - INCORRECT DOSE ADMINISTERED [None]
